FAERS Safety Report 7487852-6 (Version None)
Quarter: 2011Q2

REPORT INFORMATION
  Report Type: 
  Country: None (occurrence: None)
  Receive Date: 20110511
  Receipt Date: 20110429
  Transmission Date: 20111010
  Serious: Yes (Life-Threatening)
  Sender: FDA-Public Use
  Company Number: DKLU1070293

PATIENT
  Age: 48 Year
  Sex: Male

DRUGS (1)
  1. ELSPAR [Suspect]
     Indication: LEUKAEMIA
     Dosage: 20000 IU INTERNATIONAL  UNIT(S), INTRAVENOUS (NOT OTHERWISE SPECIFIED)
     Route: 036

REACTIONS (3)
  - DYSPNOEA [None]
  - UNEVALUABLE EVENT [None]
  - HYPERAEMIA [None]
